FAERS Safety Report 7522375-7 (Version None)
Quarter: 2011Q2

REPORT INFORMATION
  Report Type: 
  Country: None (occurrence: None)
  Receive Date: 20110603
  Receipt Date: 20110520
  Transmission Date: 20111010
  Serious: Yes (Hospitalization, Other)
  Sender: FDA-Public Use
  Company Number: US-ELI_LILLY_AND_COMPANY-US201103007208

PATIENT
  Age: 48 Year
  Sex: Male
  Weight: 93.424 kg

DRUGS (4)
  1. ZYPREXA RELPREVV [Suspect]
     Indication: SCHIZOPHRENIA
     Dosage: 210 MG, OTHER
     Route: 030
     Dates: start: 20110214
  2. ZYPREXA [Suspect]
     Dosage: 2.5 MG, UNKNOWN
     Route: 048
  3. CELEXA [Concomitant]
     Dosage: 30 MG, UNK
     Route: 048
  4. DOXEPIN [Concomitant]
     Dosage: 25 MG, UNKNOWN
     Route: 048

REACTIONS (3)
  - HEMIPARESIS [None]
  - TRANSIENT ISCHAEMIC ATTACK [None]
  - HYPOAESTHESIA [None]
